FAERS Safety Report 17786895 (Version 1)
Quarter: 2020Q2

REPORT INFORMATION
  Report Type: Spontaneous
  Country: JP (occurrence: JP)
  Receive Date: 20200514
  Receipt Date: 20200514
  Transmission Date: 20200714
  Serious: Yes (Other)
  Sender: FDA-Public Use
  Company Number: JP-BAUSCH-BL-2020-013763

PATIENT
  Age: 16 Year
  Sex: Male

DRUGS (1)
  1. MESALAMINE. [Suspect]
     Active Substance: MESALAMINE
     Indication: CROHN^S DISEASE
     Route: 048

REACTIONS (1)
  - Pleuropericarditis [Recovered/Resolved]
